FAERS Safety Report 13521811 (Version 1)
Quarter: 2017Q2

REPORT INFORMATION
  Report Type: Spontaneous
  Country: US (occurrence: US)
  Receive Date: 20170505
  Receipt Date: 20170505
  Transmission Date: 20170830
  Serious: No
  Sender: FDA-Public Use
  Company Number: None

PATIENT
  Age: 72 Year
  Sex: Female
  Weight: 50.39 kg

DRUGS (1)
  1. ENBREL [Suspect]
     Active Substance: ETANERCEPT
     Indication: RHEUMATOID ARTHRITIS
     Dosage: 50MG/MG  ONCE WEEKLY SUB Q INJECTION
     Route: 058

REACTIONS (4)
  - Swelling face [None]
  - Therapy cessation [None]
  - Rash generalised [None]
  - Contusion [None]

NARRATIVE: CASE EVENT DATE: 20170504
